FAERS Safety Report 6944160-7 (Version None)
Quarter: 2010Q3

REPORT INFORMATION
  Report Type: 
  Country: None (occurrence: None)
  Receive Date: 20100827
  Receipt Date: 20100818
  Transmission Date: 20110219
  Serious: No
  Sender: FDA-Public Use
  Company Number: US-BIOGENIDEC-2010BI028894

PATIENT
  Age: 35 Year
  Sex: Female

DRUGS (1)
  1. TYSABRI [Suspect]
     Indication: MULTIPLE SCLEROSIS
     Route: 042
     Dates: start: 20090709, end: 20100511

REACTIONS (4)
  - FATIGUE [None]
  - MULTIPLE SCLEROSIS RELAPSE [None]
  - STRESS [None]
  - SUICIDAL IDEATION [None]
